FAERS Safety Report 4310359-1 (Version None)
Quarter: 2004Q1

REPORT INFORMATION
  Report Type: 
  Country: None (occurrence: None)
  Receive Date: 20040303
  Receipt Date: 20040227
  Transmission Date: 20041129
  Serious: Yes (Other)
  Sender: FDA-Public Use
  Company Number: FR-ROCHE-359960

PATIENT
  Age: 26 Year
  Sex: Female

DRUGS (2)
  1. LOXEN [Suspect]
     Indication: PREGNANCY INDUCED HYPERTENSION
     Route: 048
     Dates: start: 19980830
  2. TRANDATE [Suspect]
     Indication: PREGNANCY INDUCED HYPERTENSION
     Route: 048
     Dates: end: 19980830

REACTIONS (3)
  - CAESAREAN SECTION [None]
  - COMPLICATIONS OF MATERNAL EXPOSURE TO THERAPEUTIC DRUGS [None]
  - PRE-ECLAMPSIA [None]
